FAERS Safety Report 14215887 (Version 4)
Quarter: 2018Q2

REPORT INFORMATION
  Report Type: Spontaneous
  Country: JP (occurrence: JP)
  Receive Date: 20171122
  Receipt Date: 20180420
  Transmission Date: 20180711
  Serious: Yes (Hospitalization, Disabling, Other)
  Sender: FDA-Public Use
  Company Number: JP-ASTELLAS-2017JP021119AA

PATIENT
  Age: 10 Year
  Sex: Male
  Weight: 34 kg

DRUGS (15)
  1. ACTEMRA [Suspect]
     Active Substance: TOCILIZUMAB
     Indication: STILL^S DISEASE
     Route: 042
     Dates: start: 200502, end: 201005
  2. BONALON [Concomitant]
     Active Substance: ALENDRONATE SODIUM
     Indication: OSTEOPOROSIS PROPHYLAXIS
     Route: 048
     Dates: start: 20071221, end: 20161208
  3. VORICONAZOLE. [Concomitant]
     Active Substance: VORICONAZOLE
     Indication: FUNGAL INFECTION
  4. ACTEMRA [Suspect]
     Active Substance: TOCILIZUMAB
     Route: 042
     Dates: start: 20100531
  5. PREDNISOLONE. [Suspect]
     Active Substance: PREDNISOLONE
     Dosage: UNK UNK, UNKNOWN FREQ.
     Route: 048
     Dates: end: 20100527
  6. CEFTRIAXONE SODIUM. [Concomitant]
     Active Substance: CEFTRIAXONE SODIUM
     Indication: PULMONARY CAVITATION
     Dosage: UNK UNK, UNKNOWN FREQ.
     Route: 065
     Dates: start: 20100521
  7. PROGRAF [Suspect]
     Active Substance: TACROLIMUS\TACROLIMUS ANHYDROUS
     Indication: STILL^S DISEASE
     Route: 048
     Dates: start: 20090622, end: 20100715
  8. PREDNISOLONE. [Suspect]
     Active Substance: PREDNISOLONE
     Route: 048
     Dates: start: 20100531, end: 201609
  9. CEFTRIAXONE SODIUM. [Concomitant]
     Active Substance: CEFTRIAXONE SODIUM
     Indication: FUNGAL INFECTION
  10. PREDNISOLONE. [Suspect]
     Active Substance: PREDNISOLONE
     Indication: STILL^S DISEASE
     Route: 048
     Dates: start: 200407
  11. ALESIOTEC [Concomitant]
     Indication: DERMATITIS ATOPIC
     Route: 048
  12. PROGRAF [Suspect]
     Active Substance: TACROLIMUS\TACROLIMUS ANHYDROUS
     Route: 048
  13. ONEALFA [Concomitant]
     Active Substance: ALFACALCIDOL
     Indication: OSTEOPOROSIS PROPHYLAXIS
     Dosage: 0.5 ?G, ONCE DAILY
     Route: 048
     Dates: start: 20070622, end: 20161228
  14. FAMOTIDINE. [Concomitant]
     Active Substance: FAMOTIDINE
     Indication: PROPHYLAXIS AGAINST GASTROINTESTINAL ULCER
     Route: 048
     Dates: start: 200407, end: 20160301
  15. VORICONAZOLE. [Concomitant]
     Active Substance: VORICONAZOLE
     Indication: PULMONARY CAVITATION
     Dosage: UNK UNK, UNKNOWN FREQ.
     Route: 065
     Dates: start: 20100521

REACTIONS (6)
  - Dislocation of vertebra [Unknown]
  - Off label use [Unknown]
  - Diarrhoea [Unknown]
  - Pulmonary cavitation [Recovered/Resolved with Sequelae]
  - Fungal infection [Recovered/Resolved with Sequelae]
  - Depressed level of consciousness [Unknown]

NARRATIVE: CASE EVENT DATE: 20090622
